FAERS Safety Report 13875294 (Version 1)
Quarter: 2017Q3

REPORT INFORMATION
  Report Type: Spontaneous
  Country: CH (occurrence: CH)
  Receive Date: 20170817
  Receipt Date: 20170817
  Transmission Date: 20171127
  Serious: Yes (Hospitalization)
  Sender: FDA-Public Use
  Company Number: CH-MYLANLABS-2017M1050233

PATIENT

DRUGS (2)
  1. TENORMIN [Concomitant]
     Active Substance: ATENOLOL
     Route: 048
  2. BRUFEN 400 MG TABLET [Suspect]
     Active Substance: IBUPROFEN
     Indication: PRODUCT USED FOR UNKNOWN INDICATION
     Route: 048
     Dates: start: 201706, end: 201706

REACTIONS (3)
  - Urticaria [Recovered/Resolved]
  - Drug eruption [Recovered/Resolved]
  - Pruritus [Recovered/Resolved]

NARRATIVE: CASE EVENT DATE: 20170624
